FAERS Safety Report 18315729 (Version 1)
Quarter: 2020Q3

REPORT INFORMATION
  Report Type: Spontaneous
  Country: RU (occurrence: RU)
  Receive Date: 20200926
  Receipt Date: 20200926
  Transmission Date: 20201103
  Serious: Yes (Other)
  Sender: FDA-Public Use
  Company Number: NVSC2020RU255875

PATIENT
  Age: 22 Year
  Sex: Male

DRUGS (8)
  1. DABRAFENIB [Suspect]
     Active Substance: DABRAFENIB
     Dosage: 150 MG, (IN THE MORNING)
     Route: 065
     Dates: start: 20200715
  2. DABRAFENIB [Suspect]
     Active Substance: DABRAFENIB
     Dosage: 225 MG, (IN THE MORNING)
     Route: 065
     Dates: start: 20200730
  3. DABRAFENIB [Suspect]
     Active Substance: DABRAFENIB
     Dosage: 225 MG, (IN THE MORNING)
     Route: 065
     Dates: start: 20200717
  4. TRAMETINIB [Suspect]
     Active Substance: TRAMETINIB
     Dosage: 2 MG, QD (IN THE MORNING)
     Route: 065
     Dates: start: 20200630
  5. DABRAFENIB [Suspect]
     Active Substance: DABRAFENIB
     Indication: PRODUCT USED FOR UNKNOWN INDICATION
     Dosage: 300 MG, QD (IN THE MORNING)
     Route: 065
     Dates: start: 20200210
  6. DABRAFENIB [Suspect]
     Active Substance: DABRAFENIB
     Dosage: 75 MG, QD
     Route: 065
     Dates: end: 20200830
  7. TRAMETINIB [Suspect]
     Active Substance: TRAMETINIB
     Indication: PRODUCT USED FOR UNKNOWN INDICATION
     Dosage: 2 MG, QD (IN THE MORNING)
     Route: 065
     Dates: start: 20200210
  8. DABRAFENIB [Suspect]
     Active Substance: DABRAFENIB
     Dosage: 300 MG, QD (IN THE MORNING)
     Route: 065
     Dates: start: 20200630, end: 20200715

REACTIONS (4)
  - Pyrexia [Recovering/Resolving]
  - Metastasis [Unknown]
  - Wound dehiscence [Unknown]
  - Nausea [Recovering/Resolving]

NARRATIVE: CASE EVENT DATE: 20200224
